FAERS Safety Report 17816556 (Version 1)
Quarter: 2020Q2

REPORT INFORMATION
  Report Type: Spontaneous
  Country: US (occurrence: US)
  Receive Date: 20200522
  Receipt Date: 20200522
  Transmission Date: 20200714
  Serious: Yes (Hospitalization, Other)
  Sender: FDA-Public Use
  Company Number: None

PATIENT
  Age: 84 Year
  Sex: Female
  Weight: 68.4 kg

DRUGS (10)
  1. ENOXAPARIN [Concomitant]
     Active Substance: ENOXAPARIN
     Dates: start: 20200510, end: 20200517
  2. LORAZEPAM. [Concomitant]
     Active Substance: LORAZEPAM
     Dates: start: 20200516, end: 20200522
  3. ATORVASTATIN [Concomitant]
     Active Substance: ATORVASTATIN
     Dates: start: 20200509, end: 20200522
  4. DILTIAZEM. [Concomitant]
     Active Substance: DILTIAZEM
     Dates: start: 20200516, end: 20200516
  5. INSULIN [Concomitant]
     Active Substance: INSULIN NOS
     Dates: start: 20200508, end: 20200522
  6. METOPROLOL. [Concomitant]
     Active Substance: METOPROLOL
     Dates: start: 20200515, end: 20200516
  7. FENTANYL. [Concomitant]
     Active Substance: FENTANYL
     Dates: start: 20200516, end: 20200522
  8. FUROSEMIDE. [Concomitant]
     Active Substance: FUROSEMIDE
     Dates: start: 20200514, end: 20200514
  9. PANTOPRAZOLE [Concomitant]
     Active Substance: PANTOPRAZOLE
     Dates: start: 20200510, end: 20200522
  10. REMDESIVIR. [Suspect]
     Active Substance: REMDESIVIR
     Indication: COVID-19
     Route: 042
     Dates: start: 20200514, end: 20200516

REACTIONS (2)
  - Blood creatinine increased [None]
  - COVID-19 [None]

NARRATIVE: CASE EVENT DATE: 20200516
